FAERS Safety Report 8425244 (Version 3)
Quarter: 2012Q4

REPORT INFORMATION
  Report Type: 
  Country: US (occurrence: US)
  Receive Date: 20120224
  Receipt Date: 20120917
  Transmission Date: 20130627
  Serious: No
  Sender: FDA-Public Use
  Company Number: US-PFIZER INC-K201100878

PATIENT
  Age: 84 Year
  Sex: Female
  Weight: 47.17 kg

DRUGS (2)
  1. FLECTOR [Suspect]
     Indication: PAIN IN EXTREMITY
     Dosage: 1.3 %, UNK
     Route: 061
     Dates: start: 201001, end: 201101
  2. FLECTOR [Suspect]
     Indication: PAIN
     Dosage: UNK, as needed
     Route: 061
     Dates: start: 201112, end: 201204

REACTIONS (9)
  - Dyspnoea [Unknown]
  - Implant site irritation [Unknown]
  - Body height decreased [Unknown]
  - Musculoskeletal disorder [Unknown]
  - Rash [Unknown]
  - Malaise [Unknown]
  - Sinus disorder [Unknown]
  - Presyncope [Unknown]
  - Hypoaesthesia eye [Unknown]
